FAERS Safety Report 20503370 (Version 1)
Quarter: 2022Q1

REPORT INFORMATION
  Report Type: Spontaneous
  Country: TN (occurrence: TN)
  Receive Date: 20220222
  Receipt Date: 20220222
  Transmission Date: 20220423
  Serious: Yes (Hospitalization)
  Sender: FDA-Public Use
  Company Number: TN-Merck Healthcare KGaA-9299558

PATIENT
  Age: 75 Year
  Sex: Female

DRUGS (6)
  1. ERBITUX [Suspect]
     Active Substance: CETUXIMAB
     Indication: Rectal cancer
     Dosage: UNK UNK, UNKNOWN
     Route: 065
     Dates: start: 201501
  2. XELODA [Concomitant]
     Active Substance: CAPECITABINE
     Indication: Rectal cancer
     Dosage: UNK
  3. FLUOROURACIL [Concomitant]
     Active Substance: FLUOROURACIL
     Indication: Rectal cancer
     Dosage: UNK
  4. LEUCOVORIN [Concomitant]
     Active Substance: LEUCOVORIN
     Indication: Rectal cancer
     Dosage: UNK
  5. IRINOTECAN [Concomitant]
     Active Substance: IRINOTECAN
     Indication: Rectal cancer
     Dosage: UNK
  6. OXALIPLATIN [Concomitant]
     Active Substance: OXALIPLATIN
     Indication: Rectal cancer
     Dosage: UNK

REACTIONS (2)
  - Immune-mediated lung disease [Unknown]
  - Respiratory distress [Unknown]

NARRATIVE: CASE EVENT DATE: 20220209
